FAERS Safety Report 10523204 (Version 2)
Quarter: 2015Q1

REPORT INFORMATION
  Report Type: Spontaneous
  Country: IT (occurrence: IT)
  Receive Date: 20141016
  Receipt Date: 20150128
  Transmission Date: 20150720
  Serious: Yes (Hospitalization)
  Sender: FDA-Public Use
  Company Number: IT-PFIZER INC-2014282348

PATIENT
  Age: 75 Year
  Sex: Female

DRUGS (6)
  1. ATENOLOL, CHLORTALIDONE [Concomitant]
  2. METHOTREXATE [Concomitant]
     Active Substance: METHOTREXATE
     Dosage: 2.5 MG, UNK
  3. TYGACIL [Suspect]
     Active Substance: TIGECYCLINE
     Indication: SEPSIS
     Dosage: 1200 MG, 1X/DAY
     Route: 048
     Dates: start: 20140929, end: 20141003
  4. OMEPRAZOLE. [Concomitant]
     Active Substance: OMEPRAZOLE
  5. MEDROL [Concomitant]
     Active Substance: METHYLPREDNISOLONE
  6. FOLINA [Concomitant]
     Active Substance: FOLIC ACID

REACTIONS (1)
  - Neutropenia [Recovered/Resolved]

NARRATIVE: CASE EVENT DATE: 20141003
